FAERS Safety Report 16527121 (Version 1)
Quarter: 2019Q3

REPORT INFORMATION
  Report Type: Spontaneous
  Country: KR (occurrence: KR)
  Receive Date: 20190703
  Receipt Date: 20190703
  Transmission Date: 20191004
  Serious: Yes (Other)
  Sender: FDA-Public Use
  Company Number: KR-PFIZER INC-2019281020

PATIENT

DRUGS (1)
  1. SUTENE [Suspect]
     Active Substance: SUNITINIB MALATE

REACTIONS (1)
  - Bone marrow failure [Unknown]
